FAERS Safety Report 8393228-X (Version None)
Quarter: 2012Q2

REPORT INFORMATION
  Report Type: 
  Country: None (occurrence: None)
  Receive Date: 20120529
  Receipt Date: 20120525
  Transmission Date: 20120825
  Serious: No
  Sender: FDA-Public Use
  Company Number: US-ABBOTT-12P-163-0939538-00

PATIENT
  Sex: Male

DRUGS (3)
  1. ANDROGEL [Suspect]
     Indication: BLOOD TESTOSTERONE DECREASED
     Dosage: 2 PUMPS PER DAY
  2. ANDROGEL [Suspect]
     Indication: BLOOD TESTOSTERONE DECREASED
     Dosage: PACKETS
     Route: 061
     Dates: start: 20090101, end: 20111101
  3. UNSPECIFIED MEDICATION [Concomitant]
     Indication: HYPERTENSION
     Dosage: NOT REPORTED

REACTIONS (4)
  - MUSCLE TIGHTNESS [None]
  - SENSORY DISTURBANCE [None]
  - INCORRECT DOSE ADMINISTERED [None]
  - MUSCULOSKELETAL DISCOMFORT [None]
